FAERS Safety Report 4010626 (Version 2)
Quarter: 2018Q2

REPORT INFORMATION
  Report Type: Spontaneous
  Country: JP (occurrence: SE)
  Receive Date: 20030922
  Receipt Date: 20180607
  Transmission Date: 20180711
  Serious: Yes (Other)
  Sender: FDA-Public Use
  Company Number: JP-JNJFOC-20030901883

PATIENT
  Age: 68 Year
  Sex: Female

DRUGS (5)
  1. TAVANIC [Suspect]
     Active Substance: LEVOFLOXACIN
     Indication: ABSCESS
     Route: 048
     Dates: start: 20011010, end: 20011220
  2. FLAGYL [Suspect]
     Active Substance: METRONIDAZOLE\METRONIDAZOLE HYDROCHLORIDE
     Indication: ABSCESS
     Route: 048
     Dates: start: 20011010, end: 20011220
  3. TROMBYL [Concomitant]
     Active Substance: ASPIRIN
     Route: 048
  4. AMIMOX [Suspect]
     Active Substance: AMOXICILLIN
     Indication: PRODUCT USED FOR UNKNOWN INDICATION
     Route: 048
     Dates: start: 20011220
  5. ACETYLCYSTEIN [Suspect]
     Active Substance: ACETYLCYSTEINE
     Indication: PRODUCT USED FOR UNKNOWN INDICATION
     Route: 048
     Dates: start: 20010405

REACTIONS (2)
  - Neuropathy peripheral [Not Recovered/Not Resolved]
  - Vitamin B12 deficiency [Not Recovered/Not Resolved]

NARRATIVE: CASE EVENT DATE: 20011015
